FAERS Safety Report 19719724 (Version 1)
Quarter: 2021Q3

REPORT INFORMATION
  Report Type: Spontaneous
  Country: US (occurrence: US)
  Receive Date: 20210818
  Receipt Date: 20210818
  Transmission Date: 20211014
  Serious: Yes (Death)
  Sender: FDA-Public Use
  Company Number: None

PATIENT
  Sex: Male

DRUGS (8)
  1. VITAMIN B12 [Concomitant]
     Active Substance: CYANOCOBALAMIN
  2. ESBRIET [Suspect]
     Active Substance: PIRFENIDONE
     Indication: IDIOPATHIC PULMONARY FIBROSIS
     Route: 048
     Dates: start: 20160315
  3. PREDNISONE PAK [Concomitant]
  4. FUROSEMIDE. [Concomitant]
     Active Substance: FUROSEMIDE
  5. ALBUTEROL SU LFATE [Concomitant]
  6. CARVEDILOL. [Concomitant]
     Active Substance: CARVEDILOL
  7. POTASSIUM POW CHLORIDE [Concomitant]
  8. VITAMIN D [Concomitant]
     Active Substance: VITAMIN D NOS

REACTIONS (1)
  - Death [None]
